FAERS Safety Report 7436701-0 (Version None)
Quarter: 2011Q2

REPORT INFORMATION
  Report Type: 
  Country: None (occurrence: None)
  Receive Date: 20110426
  Receipt Date: 20110412
  Transmission Date: 20111010
  Serious: Yes (Other)
  Sender: FDA-Public Use
  Company Number: US-JNJFOC-20110405078

PATIENT

DRUGS (1)
  1. REMICADE [Suspect]
     Indication: ANKYLOSING SPONDYLITIS
     Route: 042

REACTIONS (10)
  - BACK PAIN [None]
  - ARTHRALGIA [None]
  - RASH PAPULAR [None]
  - MOVEMENT DISORDER [None]
  - RENAL SURGERY [None]
  - NECK PAIN [None]
  - JOINT STIFFNESS [None]
  - DRY SKIN [None]
  - NEPHROLITHIASIS [None]
  - PRURITUS [None]
